FAERS Safety Report 5844541-9 (Version None)
Quarter: 2008Q3

REPORT INFORMATION
  Report Type: 
  Country: None (occurrence: None)
  Receive Date: 20080814
  Receipt Date: 20080811
  Transmission Date: 20090109
  Serious: Yes (Death)
  Sender: FDA-Public Use
  Company Number: PHHO2005RU05333

PATIENT
  Sex: Male
  Weight: 75 kg

DRUGS (1)
  1. PLACEBO PLACEBO [Suspect]
     Indication: DEMENTIA ALZHEIMER'S TYPE
     Dates: start: 20050323, end: 20050326

REACTIONS (4)
  - APHASIA [None]
  - CEREBROVASCULAR ACCIDENT [None]
  - COMA [None]
  - HEMIPARESIS [None]
